FAERS Safety Report 21342156 (Version 3)
Quarter: 2022Q4

REPORT INFORMATION
  Report Type: Spontaneous
  Country: US (occurrence: US)
  Receive Date: 20220916
  Receipt Date: 20221005
  Transmission Date: 20230113
  Serious: Yes (Other)
  Sender: FDA-Public Use
  Company Number: US-AMGEN-USASP2022159841

PATIENT
  Sex: Female

DRUGS (1)
  1. PROLIA [Suspect]
     Active Substance: DENOSUMAB
     Indication: Product used for unknown indication
     Dosage: UNK UNK, Q6MO
     Route: 065

REACTIONS (8)
  - Neurectomy [Unknown]
  - Intracranial mass [Unknown]
  - Staphylococcal infection [Unknown]
  - COVID-19 [Recovered/Resolved]
  - Dental cleaning [Unknown]
  - Hepatic mass [Unknown]
  - Cluster headache [Unknown]
  - Sinus disorder [Unknown]

NARRATIVE: CASE EVENT DATE: 20220901
